FAERS Safety Report 22521073 (Version 1)
Quarter: 2023Q2

REPORT INFORMATION
  Report Type: Spontaneous
  Country: PL (occurrence: PL)
  Receive Date: 20230605
  Receipt Date: 20230605
  Transmission Date: 20230722
  Serious: Yes (Hospitalization, Congenital Anomaly)
  Sender: FDA-Public Use
  Company Number: PL-TEVA-2023-PL-2894173

PATIENT
  Age: 30 Year
  Sex: Female

DRUGS (2)
  1. ETHINYL ESTRADIOL\LEVONORGESTREL [Suspect]
     Active Substance: ETHINYL ESTRADIOL\LEVONORGESTREL
     Indication: Uterine leiomyoma
     Dosage: PILLS
     Route: 065
  2. ESTRIOL [Suspect]
     Active Substance: ESTRIOL
     Indication: Vaginal infection
     Dosage: GLOBULES
     Route: 065

REACTIONS (1)
  - Hereditary angioedema with C1 esterase inhibitor deficiency [Recovering/Resolving]
